FAERS Safety Report 8900544 (Version 1)
Quarter: 2012Q4

REPORT INFORMATION
  Report Type: 
  Country: IN (occurrence: IN)
  Receive Date: 20121109
  Receipt Date: 20121109
  Transmission Date: 20130627
  Serious: Yes (Other)
  Sender: FDA-Public Use
  Company Number: IN-ROCHE-1150541

PATIENT
  Age: 20 Year
  Sex: Male

DRUGS (2)
  1. TRETINOIN [Suspect]
     Indication: ACUTE PROMYELOCYTIC LEUKAEMIA
     Route: 048
  2. DAUNORUBICIN [Concomitant]
     Route: 042

REACTIONS (1)
  - Megakaryocytes increased [Recovered/Resolved]
